FAERS Safety Report 4819864-2 (Version None)
Quarter: 2005Q4

REPORT INFORMATION
  Report Type: 
  Country: None (occurrence: None)
  Receive Date: 20051102
  Receipt Date: 20051017
  Transmission Date: 20060501
  Serious: Yes (Other)
  Sender: FDA-Public Use
  Company Number: ACO_0188_2005

PATIENT
  Age: 65 Year

DRUGS (4)
  1. TERNELIN [Suspect]
     Dosage: DF
  2. LORATADINE [Suspect]
     Dosage: DF
  3. VOLTAREN [Concomitant]
  4. EBASTEL [Concomitant]

REACTIONS (1)
  - ANAPHYLACTIC SHOCK [None]
